FAERS Safety Report 17766312 (Version 1)
Quarter: 2020Q2

REPORT INFORMATION
  Report Type: Spontaneous
  Country: CN (occurrence: CN)
  Receive Date: 20200511
  Receipt Date: 20200511
  Transmission Date: 20200714
  Serious: Yes (Disabling)
  Sender: FDA-Public Use
  Company Number: CN-PFIZER INC-2020186894

PATIENT
  Age: 56 Year
  Sex: Female
  Weight: 54 kg

DRUGS (3)
  1. PHARMORUBICIN [Suspect]
     Active Substance: EPIRUBICIN
     Indication: BREAST CANCER
     Dosage: 120 MG, 1X/DAY (ABOUT 20 D/MIN)
     Route: 041
     Dates: start: 20200220, end: 20200424
  2. SODIUM CHLORIDE. [Concomitant]
     Active Substance: SODIUM CHLORIDE
     Indication: BREAST CANCER
     Dosage: 200 ML, 2X/DAY (0.9%)
     Route: 041
     Dates: start: 20200220, end: 20200424
  3. CYCLOPHOSPHAMIDE MONOHYDRATE [Concomitant]
     Active Substance: CYCLOPHOSPHAMIDE
     Indication: BREAST CANCER
     Dosage: 0.9 G, 1X/DAY (ABOUT 20D/MIN)
     Route: 041
     Dates: start: 20200220, end: 20200424

REACTIONS (1)
  - Hepatic function abnormal [Recovering/Resolving]

NARRATIVE: CASE EVENT DATE: 20200424
